FAERS Safety Report 6330319-9 (Version None)
Quarter: 2009Q3

REPORT INFORMATION
  Report Type: 
  Country: None (occurrence: None)
  Receive Date: 20090826
  Receipt Date: 20090826
  Transmission Date: 20100115
  Serious: Yes (Death)
  Sender: FDA-Public Use
  Company Number: None

PATIENT
  Age: 80 Year
  Sex: Male
  Weight: 64 kg

DRUGS (7)
  1. PURSENNID (NCH) (SENNA GLYCOSIDES (CA SALTS OF PURIFIED SENNA EXTRACT) [Suspect]
     Indication: CONSTIPATION
     Dosage: 24 MG DAILY, ORAL
     Route: 048
     Dates: start: 20090510
  2. MAGCOROL P (MAGNESIUM CITRATE) [Suspect]
     Indication: ENDOSCOPY LARGE BOWEL
     Dosage: 50 G DISSOLVED IN 150 ML OF WATER ORAL
     Route: 048
     Dates: start: 20090511
  3. SHINLUCK (SODIUM PICOSULFATE); [Suspect]
     Indication: ENDOSCOPY LARGE BOWEL
     Dosage: 15 DROPS, ORAL
     Route: 048
     Dates: start: 20090508, end: 20090508
  4. VENCOLL (CASANTHRANOL, DOCUSATE SODIUM) [Concomitant]
  5. LECICARBON (LECITHIN, SODIUM BICARBONATE, SODIUM PHOSPHATE MONOBASIC ( [Concomitant]
  6. GLYCEROL 2.6% [Concomitant]
  7. REGIMEN #2 20 DROPS DAILY, ORAL [Suspect]
     Dosage: 20 DROPS ORAL
     Route: 048
     Dates: start: 20090509, end: 20090510

REACTIONS (19)
  - ABDOMINAL DISTENSION [None]
  - ARRHYTHMIA [None]
  - BLOOD PRESSURE DIASTOLIC INCREASED [None]
  - BLOOD PRESSURE SYSTOLIC DECREASED [None]
  - CARDIAC ARREST [None]
  - COLD SWEAT [None]
  - CONSTIPATION [None]
  - DEFAECATION URGENCY [None]
  - DIARRHOEA [None]
  - FAECAL VOLUME DECREASED [None]
  - FLATULENCE [None]
  - GASTROINTESTINAL STENOSIS [None]
  - INCORRECT DOSE ADMINISTERED [None]
  - NAUSEA [None]
  - PALLOR [None]
  - PULSE ABSENT [None]
  - RESPIRATORY ARREST [None]
  - UNRESPONSIVE TO STIMULI [None]
  - VOMITING [None]
